FAERS Safety Report 4334600-4 (Version None)
Quarter: 2004Q2

REPORT INFORMATION
  Report Type: 
  Country: None (occurrence: None)
  Receive Date: 20040407
  Receipt Date: 20030407
  Transmission Date: 20050107
  Serious: Yes (Hospitalization, Other)
  Sender: FDA-Public Use
  Company Number: US-MERCK-0304USA00760

PATIENT
  Age: 58 Year
  Sex: Female
  Weight: 77 kg

DRUGS (5)
  1. TYLENOL W/ CODEINE [Concomitant]
     Route: 065
  2. VIOXX [Suspect]
     Indication: BACK PAIN
     Route: 048
     Dates: start: 20010716
  3. VIOXX [Suspect]
     Route: 048
     Dates: start: 20010701, end: 20020801
  4. VIOXX [Suspect]
     Indication: OSTEOARTHRITIS
     Route: 048
     Dates: start: 20010716
  5. VIOXX [Suspect]
     Route: 048
     Dates: start: 20010701, end: 20020801

REACTIONS (28)
  - ANKLE FRACTURE [None]
  - BALANCE DISORDER [None]
  - BENIGN LUNG NEOPLASM [None]
  - CELLULITIS [None]
  - CEREBROVASCULAR ACCIDENT [None]
  - CHEST PAIN [None]
  - DIZZINESS POSTURAL [None]
  - EMPTY SELLA SYNDROME [None]
  - FIBROMYALGIA [None]
  - HEADACHE [None]
  - HEPATIC CYST [None]
  - HYPERTENSION [None]
  - HYPOAESTHESIA [None]
  - INCISION SITE COMPLICATION [None]
  - INJURY [None]
  - LABYRINTHITIS [None]
  - LIVER DISORDER [None]
  - LUMBAR SPINAL STENOSIS [None]
  - NAUSEA [None]
  - PARAESTHESIA [None]
  - PNEUMONIA [None]
  - RED BLOOD CELL SEDIMENTATION RATE INCREASED [None]
  - RESIDUAL URINE VOLUME [None]
  - SCAR [None]
  - URINARY RETENTION [None]
  - VERTEBROBASILAR INSUFFICIENCY [None]
  - VERTIGO [None]
  - WOUND INFECTION [None]
